FAERS Safety Report 6607053-0 (Version None)
Quarter: 2010Q1

REPORT INFORMATION
  Report Type: 
  Country: None (occurrence: None)
  Receive Date: 20100219
  Receipt Date: 20100211
  Transmission Date: 20100710
  Serious: No
  Sender: FDA-Public Use
  Company Number: 2010000802

PATIENT
  Sex: Male

DRUGS (4)
  1. FENTORA [Suspect]
     Indication: BACK PAIN
     Dosage: (800 MCG), BU
     Route: 002
  2. ACTIQ [Suspect]
     Indication: BACK PAIN
     Dosage: (1600 MCG), BU
     Route: 002
     Dates: start: 20050101
  3. DILAUDID [Concomitant]
  4. OXYCONTIN [Concomitant]

REACTIONS (5)
  - DENTAL CARIES [None]
  - DRUG EFFECT DECREASED [None]
  - DRUG EFFECT DELAYED [None]
  - DRUG PRESCRIBING ERROR [None]
  - SINUSITIS [None]
